FAERS Safety Report 7606753-3 (Version None)
Quarter: 2011Q3

REPORT INFORMATION
  Report Type: 
  Country: None (occurrence: None)
  Receive Date: 20110713
  Receipt Date: 20110628
  Transmission Date: 20111222
  Serious: No
  Sender: FDA-Public Use
  Company Number: US-B.I. PHARMACEUTICALS,INC./RIDGEFIELD-2011-BP-16609BP

PATIENT
  Sex: Male

DRUGS (5)
  1. LORAZEPAM [Concomitant]
     Indication: NERVOUSNESS
  2. PRADAXA [Suspect]
     Indication: ATRIAL FIBRILLATION
     Dosage: 300 MG
     Route: 048
     Dates: start: 20110301
  3. PANTOPRAZOLE [Concomitant]
     Indication: GASTROOESOPHAGEAL REFLUX DISEASE
  4. LEVOXYL [Concomitant]
     Indication: HYPOTHYROIDISM
  5. POTASSIUM [Concomitant]
     Indication: SUPPLEMENTATION THERAPY

REACTIONS (1)
  - FEELING ABNORMAL [None]
